FAERS Safety Report 5274263-7 (Version None)
Quarter: 2007Q1

REPORT INFORMATION
  Report Type: 
  Country: None (occurrence: None)
  Receive Date: 20070323
  Receipt Date: 20070312
  Transmission Date: 20070707
  Serious: Yes (Death, Life-Threatening, Hospitalization)
  Sender: FDA-Public Use
  Company Number: NL-JNJFOC-20070103955

PATIENT
  Sex: Male

DRUGS (15)
  1. BLINDED; INFLIXIMAB, RECOMBINANT [Suspect]
     Route: 042
  2. BLINDED; INFLIXIMAB, RECOMBINANT [Suspect]
     Route: 042
  3. BLINDED; INFLIXIMAB, RECOMBINANT [Suspect]
     Route: 042
  4. BLINDED; INFLIXIMAB, RECOMBINANT [Suspect]
     Route: 042
  5. BLINDED; INFLIXIMAB, RECOMBINANT [Suspect]
     Indication: IDIOPATHIC PULMONARY FIBROSIS
     Route: 042
  6. PLACEBO [Suspect]
     Route: 042
  7. PLACEBO [Suspect]
     Route: 042
  8. PLACEBO [Suspect]
     Route: 042
  9. PLACEBO [Suspect]
     Route: 042
  10. PLACEBO [Suspect]
     Indication: IDIOPATHIC PULMONARY FIBROSIS
     Route: 042
  11. AZATHIOPRINE [Concomitant]
     Route: 048
  12. COZAAR [Concomitant]
     Route: 048
  13. FLUIMUCIL [Concomitant]
     Route: 048
  14. ACTONEL [Concomitant]
  15. CALCI-CHEW D [Concomitant]

REACTIONS (2)
  - DYSPNOEA [None]
  - NEOPLASM MALIGNANT [None]
